FAERS Safety Report 12255173 (Version 2)
Quarter: 2016Q2

REPORT INFORMATION
  Report Type: Spontaneous
  Country: DK (occurrence: DK)
  Receive Date: 20160412
  Receipt Date: 20160414
  Transmission Date: 20160815
  Serious: Yes (Hospitalization)
  Sender: FDA-Public Use
  Company Number: PHHY2016DK046312

PATIENT
  Age: 18 Year
  Sex: Female

DRUGS (2)
  1. MALONETTA [Suspect]
     Active Substance: ETHINYL ESTRADIOL\LEVONORGESTREL
     Indication: MENSTRUATION IRREGULAR
     Route: 065
     Dates: start: 20130604, end: 201504
  2. FEMICEPT [Suspect]
     Active Substance: ETHINYL ESTRADIOL\LEVONORGESTREL
     Indication: MENSTRUATION IRREGULAR
     Route: 048
     Dates: start: 20130604, end: 201504

REACTIONS (11)
  - Solar lentigo [Unknown]
  - Pruritus generalised [Recovered/Resolved]
  - Jaundice [Unknown]
  - Hepatic enzyme increased [Unknown]
  - Hepatic neoplasm [Recovered/Resolved with Sequelae]
  - Fatigue [Recovering/Resolving]
  - Yellow skin [Recovering/Resolving]
  - Liver operation [Recovered/Resolved]
  - Blood bilirubin increased [Recovering/Resolving]
  - Hepatic function abnormal [Unknown]
  - Discomfort [Unknown]

NARRATIVE: CASE EVENT DATE: 20130810
